FAERS Safety Report 5122573-6 (Version None)
Quarter: 2006Q4

REPORT INFORMATION
  Report Type: 
  Country: None (occurrence: None)
  Receive Date: 20061009
  Receipt Date: 20060906
  Transmission Date: 20070319
  Serious: Yes (Hospitalization, Other)
  Sender: FDA-Public Use
  Company Number: PHNU2006DE03046

PATIENT
  Sex: Male
  Weight: 40 kg

DRUGS (8)
  1. DIOVAN [Suspect]
     Dosage: 40 MG/DAY
     Route: 048
     Dates: start: 20041101, end: 20050427
  2. DIOVAN [Suspect]
     Dosage: 20 MG/DAY
     Route: 048
  3. DIOVAN [Suspect]
     Dosage: 40 MG/DAY
     Route: 048
  4. DILATREND [Concomitant]
     Dosage: 0.5 TABLET/DAY
     Route: 048
     Dates: start: 20041101
  5. TORSEMIDE [Concomitant]
     Dosage: 10 MG/DAY
     Route: 048
     Dates: start: 20041101, end: 20051201
  6. SPIRONOLACTONE [Concomitant]
     Dosage: 25 MG/DAY
     Route: 048
     Dates: start: 20041101
  7. AMIODARONE HCL [Concomitant]
     Dosage: 200 MG/DAY
     Route: 048
     Dates: start: 20051201
  8. FUROSEMIDE [Concomitant]
     Dosage: 125-500 MG/DAY
     Route: 048
     Dates: start: 20051201

REACTIONS (4)
  - ANAEMIA [None]
  - BLOOD CREATININE INCREASED [None]
  - HEPATITIS C [None]
  - RENAL FAILURE ACUTE [None]
